FAERS Safety Report 5356951-7 (Version None)
Quarter: 2007Q2

REPORT INFORMATION
  Report Type: 
  Country: None (occurrence: None)
  Receive Date: 20070530
  Receipt Date: 20061110
  Transmission Date: 20071010
  Serious: Yes (Hospitalization)
  Sender: FDA-Public Use
  Company Number: US200608002550

PATIENT
  Age: 30 Year
  Sex: Male
  Weight: 72.6 kg

DRUGS (4)
  1. ZYPREXA [Suspect]
     Indication: SCHIZOPHRENIA
     Dosage: SEE IMAGE
     Dates: start: 20010911, end: 20050801
  2. RISPERDAL [Concomitant]
  3. GEODON [Concomitant]
  4. HALDOL SOLUTAB [Concomitant]

REACTIONS (3)
  - NEUROLEPTIC MALIGNANT SYNDROME [None]
  - VISUAL DISTURBANCE [None]
  - WEIGHT INCREASED [None]
